FAERS Safety Report 20073819 (Version 1)
Quarter: 2021Q4

REPORT INFORMATION
  Report Type: Spontaneous
  Country: US (occurrence: US)
  Receive Date: 20211116
  Receipt Date: 20211116
  Transmission Date: 20220303
  Serious: No
  Sender: FDA-Public Use
  Company Number: US-ALLERGAN-2104900US

PATIENT
  Age: 71 Year
  Sex: Female

DRUGS (2)
  1. BRIMONIDINE [Suspect]
     Active Substance: BRIMONIDINE TARTRATE
     Indication: Glaucoma
     Dosage: EYE DROPS
     Dates: start: 20190719, end: 20190721
  2. TIMOLOL [Suspect]
     Active Substance: TIMOLOL
     Indication: Glaucoma
     Dosage: UNK
     Dates: start: 20190611, end: 20190719

REACTIONS (5)
  - Tri-iodothyronine abnormal [Unknown]
  - Thyroxine abnormal [Unknown]
  - Blood thyroid stimulating hormone abnormal [Unknown]
  - Blood pressure fluctuation [Unknown]
  - Paraesthesia [Unknown]

NARRATIVE: CASE EVENT DATE: 20190101
